FAERS Safety Report 22882538 (Version 2)
Quarter: 2023Q4

REPORT INFORMATION
  Report Type: Spontaneous
  Country: US (occurrence: US)
  Receive Date: 20230830
  Receipt Date: 20231102
  Transmission Date: 20240110
  Serious: Yes (Other)
  Sender: FDA-Public Use
  Company Number: US-BRISTOL-MYERS SQUIBB COMPANY-2023-121553

PATIENT
  Age: 70 Year
  Sex: Female

DRUGS (1)
  1. POMALYST [Suspect]
     Active Substance: POMALIDOMIDE
     Indication: Plasma cell myeloma in remission
     Dosage: TAKE 1 CAPSULE BY MOUTH EVERY DAY FOR 7 DAYS, THEN OFF FOR 7 DAYS, THEN REPEAT FOR 28 DAY CYCLE
     Route: 048
     Dates: start: 20200222

REACTIONS (3)
  - Seasonal allergy [Recovered/Resolved]
  - Off label use [Unknown]
  - Back disorder [Unknown]
